FAERS Safety Report 6640830-9 (Version None)
Quarter: 2010Q1

REPORT INFORMATION
  Report Type: 
  Country: None (occurrence: None)
  Receive Date: 20100318
  Receipt Date: 20100304
  Transmission Date: 20100710
  Serious: Yes (Other)
  Sender: FDA-Public Use
  Company Number: DE-MYLANLABS-2010S1003842

PATIENT
  Age: 75 Year
  Sex: Female

DRUGS (4)
  1. MIRTAZAPINE [Suspect]
     Indication: DRUG USE FOR UNKNOWN INDICATION
     Dates: start: 20100222, end: 20100226
  2. PROVAS /00641902/ [Concomitant]
     Indication: DRUG USE FOR UNKNOWN INDICATION
  3. OPIPRAMOL [Concomitant]
     Indication: DRUG USE FOR UNKNOWN INDICATION
  4. MIRTAZAPINE [Concomitant]
     Indication: DRUG USE FOR UNKNOWN INDICATION

REACTIONS (2)
  - AGITATION [None]
  - SLEEP DISORDER [None]
